FAERS Safety Report 10882328 (Version 1)
Quarter: 2015Q1

REPORT INFORMATION
  Report Type: Spontaneous
  Country: BR (occurrence: BR)
  Receive Date: 20150303
  Receipt Date: 20150303
  Transmission Date: 20150721
  Serious: Yes (Hospitalization)
  Sender: FDA-Public Use
  Company Number: BR-ASTRAZENECA-2015SE18062

PATIENT
  Age: 35 Year
  Sex: Male

DRUGS (3)
  1. SELOZOK [Suspect]
     Active Substance: METOPROLOL SUCCINATE
     Route: 048
  2. ASA [Concomitant]
     Active Substance: ASPIRIN
  3. CRESTOR [Suspect]
     Active Substance: ROSUVASTATIN CALCIUM
     Indication: BLOOD CHOLESTEROL INCREASED
     Route: 048

REACTIONS (2)
  - Arterial occlusive disease [Recovered/Resolved]
  - Off label use [Not Recovered/Not Resolved]

NARRATIVE: CASE EVENT DATE: 2015
